FAERS Safety Report 6116105-3 (Version None)
Quarter: 2009Q1

REPORT INFORMATION
  Report Type: 
  Country: None (occurrence: None)
  Receive Date: 20090314
  Receipt Date: 20081201
  Transmission Date: 20090719
  Serious: No
  Sender: FDA-Public Use
  Company Number: US-ABBOTT-08P-163-0490362-00

PATIENT
  Sex: Male
  Weight: 83.99 kg

DRUGS (6)
  1. HUMIRA [Suspect]
     Indication: RHEUMATOID ARTHRITIS
     Dates: start: 20081117
  2. LEFLUNOMIDE [Concomitant]
     Indication: RHEUMATOID ARTHRITIS
  3. ESOMEPRAZOLE MAGNESIUM [Concomitant]
     Indication: GASTROOESOPHAGEAL REFLUX DISEASE
  4. SIMVASTATIN [Concomitant]
     Indication: BLOOD CHOLESTEROL INCREASED
  5. AMLODIPINE MESILATE [Concomitant]
     Indication: HYPERTENSION
  6. LORATADINE [Concomitant]
     Indication: HYPERSENSITIVITY

REACTIONS (3)
  - COUGH [None]
  - NASOPHARYNGITIS [None]
  - OROPHARYNGEAL PAIN [None]
